FAERS Safety Report 4835657-4 (Version None)
Quarter: 2005Q4

REPORT INFORMATION
  Report Type: 
  Country: None (occurrence: None)
  Receive Date: 20051123
  Receipt Date: 20051109
  Transmission Date: 20060501
  Serious: Yes (Other)
  Sender: FDA-Public Use
  Company Number: 2005UW17122

PATIENT
  Age: 13054 Day
  Sex: Female
  Weight: 66.4 kg

DRUGS (6)
  1. SEROQUEL [Suspect]
     Route: 048
  2. PANTOPRAZOLE SODIUM [Suspect]
     Indication: GASTRITIS
     Route: 048
     Dates: end: 20051107
  3. DILANTIN [Concomitant]
     Indication: EPILEPSY
     Route: 048
  4. EFFEXOR XR [Concomitant]
     Indication: DEPRESSION
     Route: 048
  5. FERROUS SULFATE TAB [Concomitant]
     Indication: ANAEMIA
     Route: 048
     Dates: end: 20051110
  6. FOLIC ACID [Concomitant]

REACTIONS (3)
  - HEPATITIS [None]
  - LEUKOPENIA [None]
  - THROMBOCYTOPENIA [None]
